FAERS Safety Report 9191186 (Version 1)
Quarter: 2013Q1

REPORT INFORMATION
  Report Type: Spontaneous
  Country: BE (occurrence: BE)
  Receive Date: 20130326
  Receipt Date: 20130326
  Transmission Date: 20140127
  Serious: Yes (Other)
  Sender: FDA-Public Use
  Company Number: BE-WATSON-2013-04420

PATIENT
  Age: 5 Year
  Sex: Male

DRUGS (1)
  1. TESTOSTERONE [Suspect]
     Indication: ACCIDENTAL EXPOSURE TO PRODUCT
     Dosage: UNK, ONCE DAILY
     Route: 003

REACTIONS (3)
  - Virilism [Unknown]
  - Blood testosterone increased [Recovered/Resolved]
  - Accidental exposure to product [Unknown]
